FAERS Safety Report 7968018-X (Version None)
Quarter: 2011Q4

REPORT INFORMATION
  Report Type: 
  Country: None (occurrence: None)
  Receive Date: 20111209
  Receipt Date: 20111202
  Transmission Date: 20120403
  Serious: Yes (Other)
  Sender: FDA-Public Use
  Company Number: US-SANOFI-AVENTIS-2011SA079918

PATIENT
  Age: 78 Year
  Sex: Female

DRUGS (14)
  1. OXYCODONE HCL [Concomitant]
     Indication: PAIN
  2. PEPCID [Concomitant]
  3. FENTANYL-100 [Concomitant]
     Route: 062
  4. LANOXIN [Concomitant]
  5. PHENERGAN [Concomitant]
  6. ASPIRIN [Concomitant]
  7. VALIUM [Concomitant]
  8. ALL OTHER THERAPEUTIC PRODUCTS [Concomitant]
  9. PLAVIX [Suspect]
  10. LIPITOR [Concomitant]
  11. TOPROL-XL [Concomitant]
  12. NORVASC [Concomitant]
  13. MORPHINE [Concomitant]
  14. IMDUR [Concomitant]

REACTIONS (12)
  - ANEURYSM [None]
  - OESOPHAGEAL ULCER [None]
  - DRUG INEFFECTIVE [None]
  - PAIN IN EXTREMITY [None]
  - TERMINAL STATE [None]
  - WEIGHT DECREASED [None]
  - ARTERIAL OCCLUSIVE DISEASE [None]
  - BACK PAIN [None]
  - MYOCARDIAL INFARCTION [None]
  - CEREBROVASCULAR ACCIDENT [None]
  - BLOOD CHOLESTEROL DECREASED [None]
  - CAROTID ARTERY OCCLUSION [None]
